FAERS Safety Report 24453580 (Version 2)
Quarter: 2024Q4

REPORT INFORMATION
  Report Type: Report from Study
  Country: US (occurrence: US)
  Receive Date: 20241017
  Receipt Date: 20241018
  Transmission Date: 20250115
  Serious: No
  Sender: ROCHE
  Company Number: US-ROCHE-3103293

PATIENT
  Age: 60 Year
  Sex: Male
  Weight: 99.79 kg

DRUGS (9)
  1. RITUXAN [Suspect]
     Active Substance: RITUXIMAB
     Indication: Renal failure
     Dosage: TOTAL OF FOUR INFUSIONS
     Route: 041
  2. RITUXAN [Suspect]
     Active Substance: RITUXIMAB
     Indication: Rheumatoid arthritis
     Route: 041
  3. RITUXAN [Suspect]
     Active Substance: RITUXIMAB
     Indication: Immune-mediated vasculitis
  4. TRUXIMA [Suspect]
     Active Substance: RITUXIMAB-ABBS
     Indication: Rheumatoid arthritis
     Dosage: LAST INFUSION /NOV/2023, ONE DOSE EVERY 2 WEEKS FOR TOTAL OF 2 DOSES EVERY SIX MONTHS
     Route: 042
  5. PREDNISONE [Suspect]
     Active Substance: PREDNISONE
     Indication: Rheumatoid arthritis
     Dosage: RECEIVED STEROIDS AT VARIOUS TIMES AND AT VARIOUS DOSES
     Route: 048
  6. PREDNISONE [Suspect]
     Active Substance: PREDNISONE
     Indication: Immune-mediated vasculitis
  7. PREDNISONE [Suspect]
     Active Substance: PREDNISONE
     Indication: Renal failure
  8. TETANUS TOXOID ADSORBED (VACCINE) [Suspect]
     Active Substance: CLOSTRIDIUM TETANI TOXOID ANTIGEN (FORMALDEHYDE INACTIVATED)
     Indication: Immunisation
     Route: 065
  9. TYLENOL [Concomitant]
     Active Substance: ACETAMINOPHEN
     Route: 048

REACTIONS (14)
  - Salivary hypersecretion [Recovered/Resolved]
  - Off label use [Unknown]
  - Contusion [Not Recovered/Not Resolved]
  - Rocky mountain spotted fever [Recovered/Resolved]
  - Pain [Recovered/Resolved]
  - Immobile [Recovered/Resolved]
  - Lyme disease [Recovered/Resolved]
  - Pain in extremity [Recovered/Resolved]
  - Gastric haemorrhage [Recovered/Resolved]
  - Anaemia [Recovered/Resolved]
  - Therapeutic response shortened [Unknown]
  - Hiccups [Recovered/Resolved]
  - Fall [Unknown]
  - Weight increased [Unknown]
